FAERS Safety Report 6000283-0 (Version None)
Quarter: 2008Q4

REPORT INFORMATION
  Report Type: 
  Country: None (occurrence: None)
  Receive Date: 20081215
  Receipt Date: 20081204
  Transmission Date: 20090506
  Serious: Yes (Hospitalization)
  Sender: FDA-Public Use
  Company Number: BR-ELI_LILLY_AND_COMPANY-BR200812001388

PATIENT
  Age: 56 Year
  Sex: Female

DRUGS (8)
  1. HUMULIN N [Suspect]
     Indication: DIABETES MELLITUS
     Dosage: UNK, DAILY (1/D)
     Route: 065
  2. PROPRANOLOL [Concomitant]
     Indication: HYPERTENSION
     Dosage: 80 MG, EACH MORNING
     Route: 048
  3. PROPRANOLOL [Concomitant]
     Dosage: 80 MG, EACH EVENING
     Route: 048
  4. CAPTOPRIL [Concomitant]
     Indication: HYPERTENSION
     Dosage: 50 MG, EACH MORNING
     Route: 048
  5. CAPTOPRIL [Concomitant]
     Dosage: 50 MG, EACH EVENING
     Route: 048
  6. GLYBURIDE [Concomitant]
     Indication: DIABETES MELLITUS
     Dosage: UNK, EACH MORNING
     Route: 065
  7. GLYBURIDE [Concomitant]
     Dosage: UNK, EACH EVENING
     Route: 065
  8. DIAZEPAM [Concomitant]
     Dosage: 10 MG, DAILY (1/D)
     Route: 065

REACTIONS (3)
  - ASTHENIA [None]
  - FALL [None]
  - NERVE INJURY [None]
